FAERS Safety Report 25055210 (Version 2)
Quarter: 2025Q1

REPORT INFORMATION
  Report Type: Spontaneous
  Country: NL (occurrence: NL)
  Receive Date: 20250308
  Receipt Date: 20250317
  Transmission Date: 20250408
  Serious: Yes (Other)
  Sender: AUROBINDO
  Company Number: NL-LRB-01039801

PATIENT
  Age: 81 Year
  Sex: Female

DRUGS (6)
  1. TRAMADOL HYDROCHLORIDE [Suspect]
     Active Substance: TRAMADOL HYDROCHLORIDE
     Indication: Neuralgia
     Route: 048
     Dates: start: 20241023, end: 20241024
  2. FENTANYL [Suspect]
     Active Substance: FENTANYL
     Indication: Neuralgia
     Route: 062
     Dates: start: 20241023, end: 20241024
  3. RETINOL [Concomitant]
     Active Substance: RETINOL
     Indication: Product used for unknown indication
     Route: 065
     Dates: start: 2022
  4. CHOLECALCIFEROL [Concomitant]
     Active Substance: CHOLECALCIFEROL
     Indication: Product used for unknown indication
     Route: 065
     Dates: start: 2014
  5. HYDROXOCOBALAMIN [Concomitant]
     Active Substance: HYDROXOCOBALAMIN
     Indication: Product used for unknown indication
     Route: 065
     Dates: start: 2014
  6. Vitamin A+E [Concomitant]
     Indication: Product used for unknown indication
     Route: 065
     Dates: start: 2022

REACTIONS (2)
  - Hallucination, visual [Recovered/Resolved]
  - Somnolence [Recovered/Resolved]

NARRATIVE: CASE EVENT DATE: 20241023
